FAERS Safety Report 25218201 (Version 2)
Quarter: 2025Q2

REPORT INFORMATION
  Report Type: Report from Study
  Country: CA (occurrence: CA)
  Receive Date: 20250421
  Receipt Date: 20250606
  Transmission Date: 20250716
  Serious: Yes (Other)
  Sender: TEVA
  Company Number: CA-TEVA-VS-3321797

PATIENT
  Age: 80 Year
  Sex: Female

DRUGS (5)
  1. AJOVY [Suspect]
     Active Substance: FREMANEZUMAB-VFRM
     Indication: Migraine prophylaxis
     Dosage: LAST DOSE ADMINISTERED DATE 2025-04-08
     Route: 058
     Dates: start: 20250301
  2. AJOVY [Suspect]
     Active Substance: FREMANEZUMAB-VFRM
     Dosage: LAST DOSE ADMINISTERED DATE 2025-05-08
     Route: 058
     Dates: start: 20250301
  3. DULOXETINE [Concomitant]
     Active Substance: DULOXETINE
     Indication: Product used for unknown indication
  4. VALPROIC ACID [Concomitant]
     Active Substance: VALPROIC ACID
     Indication: Product used for unknown indication
     Route: 065
  5. GABAPENTIN [Concomitant]
     Active Substance: GABAPENTIN
     Indication: Product used for unknown indication
     Route: 065

REACTIONS (12)
  - Syncope [Recovered/Resolved]
  - Haemorrhage [Unknown]
  - Epistaxis [Unknown]
  - Palpitations [Recovering/Resolving]
  - Wrist fracture [Unknown]
  - Dizziness [Recovered/Resolved]
  - Head injury [Unknown]
  - Inappropriate schedule of product administration [Unknown]
  - Headache [Unknown]
  - Migraine [Recovered/Resolved]
  - Product use issue [Unknown]
  - Fall [Unknown]

NARRATIVE: CASE EVENT DATE: 20250101
